FAERS Safety Report 5806691-2 (Version None)
Quarter: 2008Q3

REPORT INFORMATION
  Report Type: 
  Country: None (occurrence: None)
  Receive Date: 20080710
  Receipt Date: 20080702
  Transmission Date: 20090109
  Serious: Yes (Hospitalization)
  Sender: FDA-Public Use
  Company Number: TR-AMGEN-US292879

PATIENT
  Sex: Female
  Weight: 50 kg

DRUGS (4)
  1. ENBREL [Suspect]
     Indication: RHEUMATOID ARTHRITIS
     Route: 058
     Dates: start: 20080102, end: 20080429
  2. ARAVA [Concomitant]
     Dosage: 20 MG/TABLET/20 MG
     Route: 065
  3. PREDNOL [Concomitant]
     Route: 065
  4. METHOTREXATE [Concomitant]
     Dosage: 2,5MG/TABLET/15 MG IN A WEEK
     Route: 065

REACTIONS (1)
  - TUBERCULOSIS [None]
